FAERS Safety Report 6264544-2 (Version None)
Quarter: 2009Q3

REPORT INFORMATION
  Report Type: 
  Country: None (occurrence: None)
  Receive Date: 20090710
  Receipt Date: 20090708
  Transmission Date: 20100115
  Serious: Yes (Hospitalization)
  Sender: FDA-Public Use
  Company Number: FR-WYE-G03738209

PATIENT
  Age: 62 Year
  Sex: Female

DRUGS (6)
  1. TAZOCILLINE [Suspect]
     Dosage: UNKNOWN
     Route: 042
     Dates: start: 20090302, end: 20090326
  2. TRIFLUCAN [Suspect]
     Dosage: UNKNOWN
     Route: 048
     Dates: start: 20090304, end: 20090326
  3. AMIKLIN [Suspect]
     Dosage: UNKNOWN
     Route: 042
     Dates: start: 20090302, end: 20090317
  4. VANCOMYCIN [Suspect]
     Dosage: UNKNOWN
     Route: 042
     Dates: start: 20090318, end: 20090326
  5. AUGMENTIN [Suspect]
     Dosage: UNKNOWN
     Route: 042
     Dates: start: 20090226, end: 20090302
  6. TAVANIC [Suspect]
     Dosage: UNKNOWN
     Route: 042
     Dates: start: 20090226, end: 20090302

REACTIONS (14)
  - ANTINUCLEAR ANTIBODY POSITIVE [None]
  - BLISTER [None]
  - DRUG RASH WITH EOSINOPHILIA AND SYSTEMIC SYMPTOMS [None]
  - EOSINOPHIL COUNT INCREASED [None]
  - EXFOLIATIVE RASH [None]
  - EYELID OEDEMA [None]
  - FACE OEDEMA [None]
  - GAMMOPATHY [None]
  - GENERALISED ERYTHEMA [None]
  - HAEMOGLOBIN DECREASED [None]
  - LYMPHADENOPATHY [None]
  - PURPURA [None]
  - RASH [None]
  - TOXIC SKIN ERUPTION [None]
